FAERS Safety Report 8473223-2 (Version None)
Quarter: 2012Q2

REPORT INFORMATION
  Report Type: 
  Country: None (occurrence: None)
  Receive Date: 20120627
  Receipt Date: 20120619
  Transmission Date: 20120825
  Serious: Yes (Other)
  Sender: FDA-Public Use
  Company Number: US-ABBOTT-12P-163-0919836-00

PATIENT
  Sex: Female
  Weight: 99.426 kg

DRUGS (16)
  1. COLACE [Concomitant]
     Indication: CONSTIPATION
  2. ENALAPRIL MALEATE [Concomitant]
     Indication: HYPERTENSION
  3. GABAPENTIN [Concomitant]
     Indication: PAIN
  4. ASPIRIN [Concomitant]
     Indication: CARDIOVASCULAR EVENT PROPHYLAXIS
  5. METHOTREXATE [Concomitant]
     Indication: RHEUMATOID ARTHRITIS
  6. VITAMIN D [Concomitant]
     Indication: VITAMIN SUPPLEMENTATION
  7. SENNA-MINT WAF [Concomitant]
     Indication: CONSTIPATION
  8. HUMIRA [Suspect]
     Indication: RHEUMATOID ARTHRITIS
     Dates: start: 20100101, end: 20110101
  9. ZANTAC [Concomitant]
     Indication: GASTROOESOPHAGEAL REFLUX DISEASE
  10. FENTANYL [Concomitant]
     Indication: PAIN
     Dosage: PATCH
  11. ZYRTEC [Concomitant]
     Indication: HYPERSENSITIVITY
  12. OMNARIS [Concomitant]
     Indication: HYPERSENSITIVITY
  13. METOPROLOL TARTRATE [Concomitant]
     Indication: HYPERTENSION
  14. HUMIRA [Suspect]
     Dates: start: 20110101, end: 20120101
  15. FOLIC ACID [Concomitant]
     Indication: VITAMIN SUPPLEMENTATION
  16. SIMVASTATIN [Concomitant]
     Indication: BLOOD CHOLESTEROL INCREASED

REACTIONS (13)
  - BACK PAIN [None]
  - WEIGHT DECREASED [None]
  - VISION BLURRED [None]
  - NERVE COMPRESSION [None]
  - BLOOD PRESSURE INCREASED [None]
  - SPINAL COLUMN STENOSIS [None]
  - OSTEOARTHRITIS [None]
  - INTERVERTEBRAL DISC PROTRUSION [None]
  - OSTEOPOROSIS [None]
  - ARTHRITIS [None]
  - LIMB DISCOMFORT [None]
  - VARICOSE VEIN [None]
  - FALL [None]
